FAERS Safety Report 15314880 (Version 2)
Quarter: 2018Q4

REPORT INFORMATION
  Report Type: Report from Study
  Country: US (occurrence: US)
  Receive Date: 20180824
  Receipt Date: 20181009
  Transmission Date: 20190204
  Serious: Yes (Death, Other)
  Sender: FDA-Public Use
  Company Number: US-ASTELLAS-2018US037588

PATIENT
  Age: 75 Year
  Sex: Male

DRUGS (5)
  1. ENZALUTAMIDE [Suspect]
     Active Substance: ENZALUTAMIDE
     Indication: PROSTATE CANCER
     Route: 048
     Dates: start: 201709, end: 20180806
  2. ROSUVASTATIN CALCIUM. [Concomitant]
     Active Substance: ROSUVASTATIN CALCIUM
     Indication: PRODUCT USED FOR UNKNOWN INDICATION
     Route: 065
  3. TAMSULOSIN [Concomitant]
     Active Substance: TAMSULOSIN
     Indication: PRODUCT USED FOR UNKNOWN INDICATION
     Dosage: 0.4 MG, TWICE DAILY
     Route: 065
  4. VENLAFAXINE HCL [Concomitant]
     Active Substance: VENLAFAXINE HYDROCHLORIDE
     Indication: PRODUCT USED FOR UNKNOWN INDICATION
     Route: 065
  5. LEVOTHYROXINE NA [Concomitant]
     Active Substance: LEVOTHYROXINE SODIUM
     Indication: PRODUCT USED FOR UNKNOWN INDICATION
     Dosage: 0.1 MG, UNKNOWN FREQ.
     Route: 065

REACTIONS (17)
  - Chronic kidney disease [Fatal]
  - Headache [Unknown]
  - Peripheral swelling [Unknown]
  - Insomnia [Unknown]
  - Back pain [Unknown]
  - Pruritus [Unknown]
  - Fatigue [Unknown]
  - Confusional state [Unknown]
  - Dyspnoea [Unknown]
  - Dry skin [Unknown]
  - Muscular weakness [Unknown]
  - Hot flush [Unknown]
  - Nausea [Unknown]
  - Cardiac failure congestive [Fatal]
  - Anxiety [Unknown]
  - Underdose [Unknown]
  - Cardiac arrest [Fatal]

NARRATIVE: CASE EVENT DATE: 201801
